FAERS Safety Report 16974120 (Version 4)
Quarter: 2020Q1

REPORT INFORMATION
  Report Type: Report from Study
  Country: ES (occurrence: ES)
  Receive Date: 20191030
  Receipt Date: 20200218
  Transmission Date: 20200409
  Serious: Yes (Life-Threatening)
  Sender: FDA-Public Use
  Company Number: ES-ROCHE-2446689

PATIENT
  Age: 56 Year
  Sex: Male
  Weight: 75.5 kg

DRUGS (6)
  1. ATEZOLIZUMAB. [Suspect]
     Active Substance: ATEZOLIZUMAB
     Indication: MALIGNANT MELANOMA
     Dosage: ON DAYS 1 AND 15 OF EACH 28-DAY CYCLE?ON 13/OCT/2019, HE RECEIVED HIS MOST RECENT DOSE OF ATEZOLIZUM
     Route: 041
     Dates: start: 20180601
  2. SIMVASTATINA [Concomitant]
     Active Substance: SIMVASTATIN
     Indication: DYSLIPIDAEMIA
     Route: 048
  3. COBIMETINIB. [Suspect]
     Active Substance: COBIMETINIB
     Indication: MALIGNANT MELANOMA
     Dosage: ON DAYS 1 TO 21 OF EACH 28-DAY CYCLE?ON 13/OCT/2019, HE RECEIVED HIS MOST RECENT DOSE OF COBIMETINIB
     Route: 048
     Dates: start: 20180601
  4. DIAMICRON [Concomitant]
     Active Substance: GLICLAZIDE
     Indication: HYPERGLYCAEMIA
     Route: 048
     Dates: start: 20180824
  5. GEMFIBROZILO [Concomitant]
     Active Substance: GEMFIBROZIL
     Indication: DYSLIPIDAEMIA
     Route: 048
  6. EUCREAS [Concomitant]
     Active Substance: METFORMIN HYDROCHLORIDE\VILDAGLIPTIN
     Indication: HYPERGLYCAEMIA
     Dosage: 1
     Route: 048
     Dates: start: 20180824

REACTIONS (2)
  - Lipase increased [Recovered/Resolved]
  - Lipase increased [Recovered/Resolved]

NARRATIVE: CASE EVENT DATE: 20191014
